FAERS Safety Report 4875094-X (Version None)
Quarter: 2006Q1

REPORT INFORMATION
  Report Type: 
  Country: None (occurrence: None)
  Receive Date: 20060109
  Receipt Date: 20050901
  Transmission Date: 20060701
  Serious: Yes (Life-Threatening, Hospitalization, Disabling, Other)
  Sender: FDA-Public Use
  Company Number: GB-GLAXOSMITHKLINE-B0392437A

PATIENT
  Age: 77 Year
  Sex: Female

DRUGS (4)
  1. ROPINIROLE HCL [Suspect]
     Indication: PARKINSONISM
     Route: 048
     Dates: start: 20050813, end: 20050816
  2. SINEMET [Concomitant]
     Indication: PARKINSONISM
     Dosage: 1.5TAB PER DAY
     Route: 048
     Dates: start: 19970710
  3. SINEMET [Concomitant]
     Route: 048
     Dates: start: 20030710
  4. SELEGILINE HCL [Concomitant]
     Indication: PARKINSONISM
     Dosage: 5MG IN THE MORNING
     Route: 048
     Dates: start: 20010927, end: 20051114

REACTIONS (1)
  - VENTRICULAR FIBRILLATION [None]
